FAERS Safety Report 8926476 (Version 1)
Quarter: 2012Q4

REPORT INFORMATION
  Report Type: 
  Country: US (occurrence: US)
  Receive Date: 20121127
  Receipt Date: 20121127
  Transmission Date: 20130627
  Serious: Yes (Death)
  Sender: FDA-Public Use
  Company Number: US-ELI_LILLY_AND_COMPANY-US201211006688

PATIENT
  Age: 65 Year
  Sex: Female

DRUGS (4)
  1. GEMZAR [Suspect]
     Indication: GASTROINTESTINAL CARCINOMA
     Dosage: unk, cycle
     Dates: start: 20120501
  2. GEMZAR [Suspect]
     Dosage: Unk, cycle
  3. GEMZAR [Suspect]
     Dosage: Unk, cycle
  4. GEMZAR [Suspect]
     Dosage: Unk, cycle
     Dates: end: 20120626

REACTIONS (2)
  - Death [Fatal]
  - Off label use [Recovered/Resolved]
